FAERS Safety Report 10618561 (Version 2)
Quarter: 2015Q1

REPORT INFORMATION
  Report Type: Spontaneous
  Country: US (occurrence: None)
  Receive Date: 20141125
  Receipt Date: 20150325
  Transmission Date: 20150720
  Serious: Yes (Hospitalization)
  Sender: FDA-Public Use
  Company Number: FK201405463

PATIENT
  Age: 55 Year
  Sex: Female
  Weight: 90 kg

DRUGS (7)
  1. LEUCOVORIN CALCIUM. [Suspect]
     Active Substance: LEUCOVORIN CALCIUM
     Indication: ADENOCARCINOMA OF COLON
     Dosage: NOT OTHERWISE SPECIFIED
     Route: 042
     Dates: start: 20140723, end: 20141001
  2. DEXAMETHASONE (DEXAMETHASONE) (DEXAMETHASONE) [Suspect]
     Active Substance: DEXAMETHASONE
  3. EMEND [Concomitant]
     Active Substance: APREPITANT
  4. FLUOROURACIL. [Suspect]
     Active Substance: FLUOROURACIL
     Indication: ADENOCARCINOMA OF COLON
     Dosage: ON DAY 1
     Route: 042
     Dates: start: 20140723, end: 20141001
  5. ELOXATIN (OXALIPLATIN) (OXALIPLATIN) [Suspect]
     Active Substance: OXALIPLATIN
     Indication: ADENOCARCINOMA OF COLON
     Dosage: NOT OTHERWISE SPECIFIED
     Route: 042
     Dates: start: 20140723, end: 20141001
  6. CELECOXIB (CELECOXIB) (CELECOXIB) [Concomitant]
     Active Substance: CELECOXIB
     Indication: ADENOCARCINOMA OF COLON
     Route: 048
     Dates: start: 20140723, end: 20141007
  7. ALOXI (PALONOSETRON HYDROCHLORIDE) [Concomitant]

REACTIONS (3)
  - Hyperglycaemia [None]
  - Hypotension [None]
  - Platelet count decreased [None]

NARRATIVE: CASE EVENT DATE: 20141006
